FAERS Safety Report 8087982 (Version 2)
Quarter: 2016Q4

REPORT INFORMATION
  Report Type: Report from Study
  Country: FR (occurrence: FR)
  Receive Date: 20110812
  Receipt Date: 20161024
  Transmission Date: 20170207
  Serious: Yes (Death, Life-Threatening)
  Sender: FDA-Public Use
  Company Number: FR-PFIZER INC-2011175894

PATIENT
  Age: 23 Year
  Sex: Male

DRUGS (3)
  1. GEMTUZUMAB OZOGAMICIN [Suspect]
     Active Substance: GEMTUZUMAB OZOGAMICIN
  2. ENDOXAN [Suspect]
     Active Substance: CYCLOPHOSPHAMIDE
     Route: 042
  3. BUSILVEX [Suspect]
     Active Substance: BUSULFAN
     Dosage: 6MG/ML
     Route: 042

REACTIONS (2)
  - Venoocclusive liver disease [Not Recovered/Not Resolved]
  - Haematemesis [Fatal]

NARRATIVE: CASE EVENT DATE: 20081025
